FAERS Safety Report 15819846 (Version 3)
Quarter: 2019Q1

REPORT INFORMATION
  Report Type: Spontaneous
  Country: JP (occurrence: JP)
  Receive Date: 20190114
  Receipt Date: 20190204
  Transmission Date: 20190417
  Serious: Yes (Death)
  Sender: FDA-Public Use
  Company Number: JP-ROCHE-2244525

PATIENT
  Age: 80 Year
  Sex: Male
  Weight: 66 kg

DRUGS (7)
  1. NAIXAN [Concomitant]
     Active Substance: NAPROXEN SODIUM
     Route: 065
     Dates: start: 20181113, end: 20181231
  2. TECENTRIQ [Suspect]
     Active Substance: ATEZOLIZUMAB
     Indication: LUNG ADENOCARCINOMA
     Route: 041
     Dates: start: 20181221, end: 20181221
  3. ENTECAVIR HYDRATE [Concomitant]
     Route: 065
     Dates: start: 20181030, end: 20181225
  4. DENOTAS [Concomitant]
     Active Substance: CALCIUM CARBONATE\CHOLECALCIFEROL\MAGNESIUM CARBONATE
     Route: 048
     Dates: start: 20181122, end: 20181225
  5. ALIMTA [Suspect]
     Active Substance: PEMETREXED DISODIUM
     Indication: LUNG ADENOCARCINOMA
     Route: 041
  6. NITRODERM [Concomitant]
     Active Substance: NITROGLYCERIN
     Route: 065
  7. OLOPATADINE HYDROCHLORIDE. [Concomitant]
     Active Substance: OLOPATADINE HYDROCHLORIDE
     Route: 065
     Dates: start: 20181116, end: 20181225

REACTIONS (2)
  - Interstitial lung disease [Fatal]
  - Phrenic nerve paralysis [Unknown]

NARRATIVE: CASE EVENT DATE: 20181222
